FAERS Safety Report 5217452-X (Version None)
Quarter: 2007Q1

REPORT INFORMATION
  Report Type: 
  Country: None (occurrence: None)
  Receive Date: 20070124
  Receipt Date: 20060307
  Transmission Date: 20070707
  Serious: No
  Sender: FDA-Public Use
  Company Number: US-GLAXOSMITHKLINE-A0596506A

PATIENT
  Age: 61 Year
  Sex: Female

DRUGS (5)
  1. PAXIL CR [Suspect]
     Indication: DEPRESSION
     Dosage: 25MG PER DAY
     Route: 048
     Dates: start: 20050801
  2. ALPRAZOLAM [Concomitant]
  3. LIPITOR [Concomitant]
  4. CEPHALEXIN [Concomitant]
  5. ZETIA [Concomitant]

REACTIONS (2)
  - ARRHYTHMIA [None]
  - URINARY RETENTION [None]
